FAERS Safety Report 20646215 (Version 1)
Quarter: 2022Q1

REPORT INFORMATION
  Report Type: Spontaneous
  Country: US (occurrence: US)
  Receive Date: 20220329
  Receipt Date: 20220329
  Transmission Date: 20220423
  Serious: Yes (Other)
  Sender: FDA-Public Use
  Company Number: US-drreddys-SPO/USA/22/0148041

PATIENT
  Age: 22 Year
  Sex: Female

DRUGS (2)
  1. ZENATANE [Suspect]
     Active Substance: ISOTRETINOIN
     Indication: Product used for unknown indication
     Dosage: RMA ISSUE DATE:  28 DECEMBER 2021 06:36:21 PM AND 18 FEBRUARY 2022 03:16:41 PM
  2. ZENATANE [Suspect]
     Active Substance: ISOTRETINOIN
     Dosage: RMA ISSUE DATE: 18 FEBRUARY 2022 03:16:41 PM

REACTIONS (2)
  - Depression [Unknown]
  - Affect lability [Unknown]
